FAERS Safety Report 5942136-X (Version None)
Quarter: 2008Q4

REPORT INFORMATION
  Report Type: 
  Country: None (occurrence: None)
  Receive Date: 20081105
  Receipt Date: 20081006
  Transmission Date: 20090506
  Serious: No
  Sender: FDA-Public Use
  Company Number: US-JNJFOC-20080904777

PATIENT
  Age: 49 Year
  Sex: Female
  Weight: 91.63 kg

DRUGS (9)
  1. INVEGA [Suspect]
     Indication: DRUG THERAPY
     Route: 048
     Dates: start: 20080605
  2. INVEGA [Suspect]
     Indication: DEPRESSION
     Route: 048
     Dates: start: 20080605
  3. WELLBUTRIN XL [Concomitant]
     Indication: DEPRESSION
  4. PREMPHASE 14/14 [Concomitant]
     Indication: HORMONE REPLACEMENT THERAPY
     Dosage: DAILY
     Route: 048
  5. PEPCID [Concomitant]
     Indication: GASTROOESOPHAGEAL REFLUX DISEASE
     Route: 048
  6. LIPITOR [Concomitant]
     Indication: BLOOD CHOLESTEROL ABNORMAL
     Route: 048
  7. VENTALIN [Concomitant]
     Indication: ASTHMA
     Route: 055
  8. PROPRANOLOL [Concomitant]
     Indication: HYPERTENSION
     Route: 048
  9. SYMBICORT [Concomitant]
     Indication: ASTHMA
     Route: 055

REACTIONS (2)
  - BLOOD PROLACTIN INCREASED [None]
  - BREAST PAIN [None]
